FAERS Safety Report 4764835-8 (Version None)
Quarter: 2005Q3

REPORT INFORMATION
  Report Type: 
  Country: None (occurrence: None)
  Receive Date: 20050909
  Receipt Date: 20050818
  Transmission Date: 20060218
  Serious: Yes (Death, Life-Threatening, Disabling, Other)
  Sender: FDA-Public Use
  Company Number: US-MERCK-0508USA03227

PATIENT
  Age: 73 Year
  Sex: Female
  Weight: 63 kg

DRUGS (16)
  1. VYTORIN [Suspect]
     Indication: HYPERCHOLESTEROLAEMIA
     Route: 048
     Dates: start: 20050106, end: 20050408
  2. ZOCOR [Suspect]
     Indication: HYPERCHOLESTEROLAEMIA
     Route: 048
     Dates: start: 20030101
  3. ZETIA [Suspect]
     Indication: HYPERCHOLESTEROLAEMIA
     Route: 048
     Dates: start: 20031001
  4. TRICOR [Concomitant]
     Route: 065
     Dates: start: 20041101
  5. ZYRTEC [Concomitant]
     Route: 065
  6. TOPROL-XL [Concomitant]
     Route: 048
  7. PLAVIX [Concomitant]
     Route: 048
  8. FOLIC ACID [Concomitant]
     Route: 048
  9. ASPIRIN [Concomitant]
     Route: 048
  10. LEVOXYL [Concomitant]
     Route: 048
  11. PRILOSEC [Concomitant]
     Route: 048
  12. ISOSORBIDE MONONITRATE [Concomitant]
     Route: 048
  13. ALDACTONE [Concomitant]
     Route: 048
  14. CALCIUM (UNSPECIFIED) [Concomitant]
     Route: 065
  15. ALTACE [Concomitant]
     Route: 065
  16. SEROQUEL [Concomitant]
     Route: 065

REACTIONS (6)
  - BLOOD CHOLESTEROL DECREASED [None]
  - DEMENTIA ALZHEIMER'S TYPE [None]
  - FAILURE TO THRIVE [None]
  - HIGH DENSITY LIPOPROTEIN DECREASED [None]
  - MENTAL STATUS CHANGES [None]
  - SYSTEMIC LUPUS ERYTHEMATOSUS [None]
